FAERS Safety Report 24793626 (Version 1)
Quarter: 2024Q4

REPORT INFORMATION
  Report Type: Report from Study
  Country: CA (occurrence: CA)
  Receive Date: 20241231
  Receipt Date: 20241231
  Transmission Date: 20250114
  Serious: Yes (Other)
  Sender: NOVARTIS
  Company Number: CA-002147023-NVSC2024CA216063

PATIENT
  Age: 58 Year
  Sex: Female

DRUGS (2)
  1. FEMARA [Suspect]
     Active Substance: LETROZOLE
     Indication: Breast cancer metastatic
     Dosage: 2.5 MG, QD
     Route: 048
     Dates: start: 20220901, end: 20221201
  2. KISQALI [Suspect]
     Active Substance: RIBOCICLIB
     Indication: Breast cancer metastatic
     Dosage: 600 MG, QD
     Route: 048
     Dates: start: 20241113

REACTIONS (11)
  - Haemorrhoidal haemorrhage [Unknown]
  - Haematochezia [Unknown]
  - Alopecia [Unknown]
  - Acne [Unknown]
  - Hirsutism [Unknown]
  - White blood cell count decreased [Unknown]
  - Aspartate aminotransferase increased [Unknown]
  - Breast inflammation [Unknown]
  - Acarodermatitis [Unknown]
  - Bowel movement irregularity [Unknown]
  - Vaginal discharge [Unknown]
